FAERS Safety Report 7039234-9 (Version None)
Quarter: 2010Q4

REPORT INFORMATION
  Report Type: 
  Country: None (occurrence: None)
  Receive Date: 20101012
  Receipt Date: 20101005
  Transmission Date: 20110411
  Serious: No
  Sender: FDA-Public Use
  Company Number: US-PFIZER INC-2010127038

PATIENT
  Sex: Male
  Weight: 71.655 kg

DRUGS (7)
  1. LIPITOR [Suspect]
     Indication: BLOOD CHOLESTEROL INCREASED
     Dosage: 20 MG, DAILY
     Route: 048
     Dates: start: 20080101
  2. COZAAR [Concomitant]
     Indication: BLOOD CHOLESTEROL INCREASED
     Dosage: 100 MG
  3. ALENDRONATE SODIUM [Concomitant]
     Indication: BONE DISORDER
     Dosage: 70 MG
  4. METOPROLOL [Concomitant]
     Indication: BLOOD CHOLESTEROL INCREASED
     Dosage: 50 MG
  5. CENTRUM SILVER [Concomitant]
     Dosage: UNK
  6. ACETYLSALICYLIC ACID [Concomitant]
     Dosage: UNK
  7. LORAZEPAM [Concomitant]
     Dosage: 0.5 MG, UNK

REACTIONS (1)
  - MYALGIA [None]
